FAERS Safety Report 10017250 (Version 2)
Quarter: 2015Q1

REPORT INFORMATION
  Report Type: Report from Study
  Country: US (occurrence: US)
  Receive Date: 20140318
  Receipt Date: 20150129
  Transmission Date: 20150720
  Serious: Yes (Other)
  Sender: FDA-Public Use
  Company Number: US-ROCHE-1360444

PATIENT
  Sex: Male

DRUGS (11)
  1. AVASTIN [Suspect]
     Active Substance: BEVACIZUMAB
     Indication: COLORECTAL CANCER METASTATIC
     Route: 065
     Dates: start: 200806, end: 200812
  2. FOLINIC ACID [Concomitant]
     Active Substance: LEUCOVORIN
  3. IRINOTECAN [Concomitant]
     Active Substance: IRINOTECAN
  4. 5-FU [Concomitant]
     Active Substance: FLUOROURACIL
  5. AVASTIN [Suspect]
     Active Substance: BEVACIZUMAB
     Route: 065
     Dates: start: 200906, end: 201009
  6. XELODA [Suspect]
     Active Substance: CAPECITABINE
     Indication: COLORECTAL CANCER METASTATIC
     Dosage: 1500 MG (3 TABLETS) IN MORNING AND 1000 MG (2 TABLETS) IN EVENING
     Route: 065
     Dates: start: 200903, end: 200905
  7. FLOMAX (UNITED STATES) [Concomitant]
     Route: 048
  8. LIPITOR [Concomitant]
     Active Substance: ATORVASTATIN CALCIUM
     Route: 048
  9. PLAVIX [Concomitant]
     Active Substance: CLOPIDOGREL BISULFATE
  10. ASPIRIN. [Concomitant]
     Active Substance: ASPIRIN
     Route: 048
  11. AVASTIN [Suspect]
     Active Substance: BEVACIZUMAB
     Route: 065
     Dates: start: 201108, end: 2012

REACTIONS (10)
  - Catheterisation cardiac [Unknown]
  - Proctalgia [Unknown]
  - Disease progression [Unknown]
  - Rectal haemorrhage [Unknown]
  - Anorectal discomfort [Unknown]
  - Rectal discharge [Unknown]
  - Palmar-plantar erythrodysaesthesia syndrome [Recovering/Resolving]
  - Adenocarcinoma [Unknown]
  - Asthenia [Unknown]
  - Dysplasia [Unknown]
